FAERS Safety Report 24377385 (Version 1)
Quarter: 2024Q3

REPORT INFORMATION
  Report Type: Spontaneous
  Country: CA (occurrence: CA)
  Receive Date: 20240930
  Receipt Date: 20240930
  Transmission Date: 20241017
  Serious: Yes (Other)
  Sender: NOVO NORDISK
  Company Number: CA-NOVOPROD-1288500

PATIENT
  Sex: Female

DRUGS (3)
  1. WEGOVY [Suspect]
     Active Substance: SEMAGLUTIDE
     Indication: Product used for unknown indication
     Dosage: 0.25 MG, QW
     Route: 058
     Dates: start: 20240912
  2. HYDROCHLOROTHIAZIDE [Concomitant]
     Active Substance: HYDROCHLOROTHIAZIDE
     Indication: Blood pressure abnormal
     Dosage: UNK
     Dates: start: 20221005
  3. ALBUTEROL [Concomitant]
     Active Substance: ALBUTEROL
     Indication: Dyspnoea
     Dosage: UNK
     Dates: start: 20240912

REACTIONS (7)
  - Nervousness [Not Recovered/Not Resolved]
  - Device delivery system issue [Unknown]
  - Device issue [Unknown]
  - Device leakage [Unknown]
  - Decreased appetite [Unknown]
  - Abdominal discomfort [Unknown]
  - Dizziness [Unknown]

NARRATIVE: CASE EVENT DATE: 20240912
